FAERS Safety Report 23500382 (Version 8)
Quarter: 2024Q2

REPORT INFORMATION
  Report Type: Spontaneous
  Country: GR (occurrence: GR)
  Receive Date: 20240208
  Receipt Date: 20240425
  Transmission Date: 20240716
  Serious: No
  Sender: FDA-Public Use
  Company Number: GR-PFIZER INC-PV202400008011

PATIENT
  Age: 9 Year
  Sex: Female
  Weight: 25 kg

DRUGS (2)
  1. GENOTROPIN [Suspect]
     Active Substance: SOMATROPIN
     Indication: Growth hormone deficiency
     Dosage: 5 MG, WEEKLY
     Route: 058
     Dates: start: 202311, end: 2024
  2. ARVECAP [Concomitant]
     Dosage: 3.75 MG, MONTHLY

REACTIONS (5)
  - Illness [Unknown]
  - Drug dose omission by device [Unknown]
  - Poor quality device used [Unknown]
  - Device physical property issue [Unknown]
  - Device leakage [Unknown]

NARRATIVE: CASE EVENT DATE: 20240101
